FAERS Safety Report 18223656 (Version 4)
Quarter: 2021Q1

REPORT INFORMATION
  Report Type: Spontaneous
  Country: US (occurrence: US)
  Receive Date: 20200902
  Receipt Date: 20210225
  Transmission Date: 20210419
  Serious: Yes (Other)
  Sender: FDA-Public Use
  Company Number: US-PFIZER INC-2020337734

PATIENT
  Age: 72 Year
  Sex: Female
  Weight: 63.05 kg

DRUGS (1)
  1. XELJANZ XR [Suspect]
     Active Substance: TOFACITINIB CITRATE
     Indication: ARTHRITIS
     Dosage: 11 MG, DAILY
     Route: 048
     Dates: start: 202007

REACTIONS (7)
  - Accident [Unknown]
  - Gait disturbance [Unknown]
  - Euphoric mood [Unknown]
  - Somnolence [Unknown]
  - Sensitivity to weather change [Unknown]
  - Fatigue [Unknown]
  - Therapeutic product effect incomplete [Unknown]
